FAERS Safety Report 18602403 (Version 3)
Quarter: 2021Q1

REPORT INFORMATION
  Report Type: Report from Study
  Country: None (occurrence: CO)
  Receive Date: 20201211
  Receipt Date: 20210304
  Transmission Date: 20210419
  Serious: Yes (Hospitalization, Other)
  Sender: FDA-Public Use
  Company Number: CO-ABBVIE-20K-036-3369965-00

PATIENT
  Age: 32 Year
  Sex: Female
  Weight: 70 kg

DRUGS (1)
  1. HUMIRA [Suspect]
     Active Substance: ADALIMUMAB
     Indication: HIDRADENITIS
     Route: 058
     Dates: start: 20180326, end: 20201016

REACTIONS (10)
  - Live birth [Unknown]
  - Hidradenitis [Recovered/Resolved]
  - Pelvic pain [Recovering/Resolving]
  - Menstruation irregular [Unknown]
  - Hidradenitis [Not Recovered/Not Resolved]
  - Pain [Not Recovered/Not Resolved]
  - Caesarean section [Recovering/Resolving]
  - Fistula [Recovered/Resolved]
  - Maternal exposure during pregnancy [Unknown]
  - Skin injury [Recovering/Resolving]

NARRATIVE: CASE EVENT DATE: 202003
